FAERS Safety Report 25838364 (Version 1)
Quarter: 2025Q3

REPORT INFORMATION
  Report Type: Spontaneous
  Country: US (occurrence: None)
  Receive Date: 20250923
  Receipt Date: 20250923
  Transmission Date: 20251021
  Serious: Yes (Other)
  Sender: Harrow Health
  Company Number: US-HARROW-HAR-2025-US-01046

PATIENT

DRUGS (1)
  1. TRIESENCE [Suspect]
     Active Substance: TRIAMCINOLONE ACETONIDE
     Route: 042

REACTIONS (2)
  - Incorrect route of product administration [Unknown]
  - Off label use [Unknown]
